FAERS Safety Report 5095186-2 (Version None)
Quarter: 2006Q3

REPORT INFORMATION
  Report Type: 
  Country: None (occurrence: None)
  Receive Date: 20060901
  Receipt Date: 20060825
  Transmission Date: 20061208
  Serious: Yes (Other)
  Sender: FDA-Public Use
  Company Number: BR-GLAXOSMITHKLINE-A0618706A

PATIENT
  Age: 38 Year
  Sex: Female
  Weight: 56 kg

DRUGS (1)
  1. AEROLIN [Suspect]
     Indication: ASTHMA
     Route: 045
     Dates: start: 20010801, end: 20010801

REACTIONS (2)
  - APNOEA [None]
  - TACHYCARDIA [None]
